FAERS Safety Report 17799566 (Version 1)
Quarter: 2020Q2

REPORT INFORMATION
  Report Type: Spontaneous
  Country: FR (occurrence: FR)
  Receive Date: 20200518
  Receipt Date: 20200518
  Transmission Date: 20200714
  Serious: Yes (Other)
  Sender: FDA-Public Use
  Company Number: FR-MYLANLABS-2020M1049691

PATIENT
  Age: 36 Year
  Sex: Female

DRUGS (14)
  1. PREDNISONE. [Concomitant]
     Active Substance: PREDNISONE
     Dosage: 30 MILLIGRAM, QD
     Dates: start: 20050926
  2. NEVIRAPINE. [Suspect]
     Active Substance: NEVIRAPINE
     Dosage: 200 MILLIGRAM, BID
  3. STAVUDINE. [Concomitant]
     Active Substance: STAVUDINE
     Dosage: 30 MILLIGRAM, BID
     Dates: start: 20050801
  4. COTRIMOXAZOLE [Concomitant]
     Active Substance: SULFAMETHOXAZOLE\TRIMETHOPRIM
     Dosage: 800160 UNK
  5. PREDNISONE. [Concomitant]
     Active Substance: PREDNISONE
     Dosage: 10 MILLIGRAM, QD
     Dates: start: 20051011, end: 20191018
  6. PREDNISONE. [Concomitant]
     Active Substance: PREDNISONE
     Dosage: 20 UNK
     Dates: start: 20051004
  7. PREDNISONE. [Concomitant]
     Active Substance: PREDNISONE
     Dosage: 40 MILLIGRAM, QD
     Dates: start: 20050920
  8. STAVUDINE. [Concomitant]
     Active Substance: STAVUDINE
     Dosage: 30 MILLIGRAM, BID
     Dates: start: 20050510
  9. LAMIVUDINE. [Concomitant]
     Active Substance: LAMIVUDINE
     Dosage: 150 MILLIGRAM, BID
     Dates: start: 20050510
  10. LAMIVUDINE. [Concomitant]
     Active Substance: LAMIVUDINE
     Dosage: 150 UNK
     Dates: start: 20050801
  11. VITAMIN B COMPLEX [Concomitant]
     Active Substance: CYANOCOBALAMIN\DEXPANTHENOL\NIACINAMIDE\PYRIDOXINE HYDROCHLORIDE\RIBOFLAVIN 5^-PHOSPHATE SODIUM\THIAMINE HYDROCHLORIDE\VITAMIN B COMPLEX
     Dosage: 2 DOSAGE FORM, QD
  12. NEVIRAPINE. [Suspect]
     Active Substance: NEVIRAPINE
     Indication: PRODUCT USED FOR UNKNOWN INDICATION
     Dosage: 200 MILLIGRAM, QD
     Dates: start: 20050510
  13. EFAVIRENZ. [Suspect]
     Active Substance: EFAVIRENZ
     Indication: PRODUCT USED FOR UNKNOWN INDICATION
     Dosage: 600 MILLIGRAM, QD
     Dates: start: 20050801
  14. PREDNISONE. [Concomitant]
     Active Substance: PREDNISONE
     Dosage: 40 MILLIGRAM, QD
     Dates: start: 20050914

REACTIONS (5)
  - Hypersensitivity [Unknown]
  - Angioedema [Unknown]
  - Rash [Recovered/Resolved]
  - Haematuria [Unknown]
  - Haemolytic anaemia [Unknown]

NARRATIVE: CASE EVENT DATE: 20050902
